FAERS Safety Report 16709058 (Version 1)
Quarter: 2019Q3

REPORT INFORMATION
  Report Type: Spontaneous
  Country: ES (occurrence: ES)
  Receive Date: 20190816
  Receipt Date: 20190816
  Transmission Date: 20191004
  Serious: Yes (Other)
  Sender: FDA-Public Use
  Company Number: ES-TEVA-2019-ES-1092618

PATIENT
  Age: 77 Year
  Sex: Female

DRUGS (3)
  1. TIZANIDINA [TIZANIDINE] [Suspect]
     Active Substance: TIZANIDINE
     Route: 048
     Dates: start: 20180612
  2. TRAMADOL + PARACETAMOL [Suspect]
     Active Substance: ACETAMINOPHEN\TRAMADOL
     Route: 048
     Dates: start: 20180518
  3. ALPRAZOLAM (99A) [Suspect]
     Active Substance: ALPRAZOLAM
     Route: 048
     Dates: start: 20181219

REACTIONS (2)
  - Cognitive disorder [Not Recovered/Not Resolved]
  - Condition aggravated [Not Recovered/Not Resolved]

NARRATIVE: CASE EVENT DATE: 201906
